FAERS Safety Report 7003398-3 (Version None)
Quarter: 2010Q3

REPORT INFORMATION
  Report Type: 
  Country: None (occurrence: None)
  Receive Date: 20100916
  Receipt Date: 20100901
  Transmission Date: 20110219
  Serious: Yes (Other)
  Sender: FDA-Public Use
  Company Number: AUR-APL-2010-02247

PATIENT
  Age: 81 Year
  Sex: Female
  Weight: 73.47 kg

DRUGS (4)
  1. METFORMIN [Suspect]
     Indication: BLOOD GLUCOSE INCREASED
     Dosage: 500MG, BID,
     Dates: start: 20100101
  2. ZOCOR [Suspect]
     Dosage: 0.5MG, DAILY, ORAL
     Route: 048
  3. INDAPAMIDE [Concomitant]
  4. LEVOTHYROXINE [Concomitant]

REACTIONS (3)
  - ABDOMINAL DISCOMFORT [None]
  - DIZZINESS [None]
  - WEIGHT DECREASED [None]
